FAERS Safety Report 5576047-9 (Version None)
Quarter: 2007Q4

REPORT INFORMATION
  Report Type: 
  Country: None (occurrence: None)
  Receive Date: 20071220
  Receipt Date: 20071206
  Transmission Date: 20080405
  Serious: Yes (Hospitalization)
  Sender: FDA-Public Use
  Company Number: ALA_00030_2007

PATIENT
  Age: 18 Year
  Sex: Male

DRUGS (2)
  1. MESALAMINE [Suspect]
     Indication: COLITIS ULCERATIVE
     Dosage: DF    1 YEAR UNTIL
  2. AZATHIOPRINE [Suspect]
     Indication: COLITIS ULCERATIVE
     Dosage: DF 1 YEAR UNTIL

REACTIONS (5)
  - DIARRHOEA [None]
  - EOSINOPHILIC PNEUMONIA [None]
  - FATIGUE [None]
  - HEPATITIS TOXIC [None]
  - THROMBOCYTHAEMIA [None]
